FAERS Safety Report 12776281 (Version 2)
Quarter: 2016Q4

REPORT INFORMATION
  Report Type: Spontaneous
  Country: US (occurrence: US)
  Receive Date: 20160923
  Receipt Date: 20161004
  Transmission Date: 20170207
  Serious: Yes (Other)
  Sender: FDA-Public Use
  Company Number: US-JNJFOC-20160918518

PATIENT
  Age: 59 Year
  Sex: Male
  Weight: 99.79 kg

DRUGS (7)
  1. GLIMEPIRIDE. [Concomitant]
     Active Substance: GLIMEPIRIDE
     Indication: DIABETES MELLITUS
     Route: 048
  2. REMICADE [Suspect]
     Active Substance: INFLIXIMAB
     Indication: COLITIS ULCERATIVE
     Route: 042
     Dates: start: 2014, end: 2014
  3. REMICADE [Suspect]
     Active Substance: INFLIXIMAB
     Indication: COLITIS ULCERATIVE
     Route: 042
     Dates: start: 20160908
  4. LOSARTAN. [Concomitant]
     Active Substance: LOSARTAN
     Indication: HYPERTENSION
     Route: 048
  5. IMURAN [Concomitant]
     Active Substance: AZATHIOPRINE
     Indication: COLITIS
     Route: 048
     Dates: start: 201609
  6. METOPROLOL. [Concomitant]
     Active Substance: METOPROLOL
     Indication: CARDIAC DISORDER
     Route: 048
     Dates: start: 2014
  7. UCERIS [Concomitant]
     Active Substance: BUDESONIDE
     Indication: GASTROINTESTINAL DISORDER
     Route: 048
     Dates: start: 201609

REACTIONS (11)
  - Pain [Recovering/Resolving]
  - Joint lock [Recovering/Resolving]
  - Oropharyngeal pain [Recovering/Resolving]
  - Arthropathy [Recovering/Resolving]
  - Aortic aneurysm [Unknown]
  - Colitis ulcerative [Unknown]
  - Rash [Recovering/Resolving]
  - Movement disorder [Recovering/Resolving]
  - Body temperature increased [Recovering/Resolving]
  - Hypoaesthesia [Recovering/Resolving]
  - Jaw disorder [Recovering/Resolving]

NARRATIVE: CASE EVENT DATE: 2014
